FAERS Safety Report 8903925 (Version 3)
Quarter: 2018Q2

REPORT INFORMATION
  Report Type: Spontaneous
  Country: US (occurrence: US)
  Receive Date: 20121112
  Receipt Date: 20180504
  Transmission Date: 20180711
  Serious: Yes (Hospitalization, Disabling, Other)
  Sender: FDA-Public Use
  Company Number: US-009507513-1211USA003751

PATIENT
  Sex: Female

DRUGS (7)
  1. VITAMIN D [Concomitant]
     Active Substance: CHOLECALCIFEROL
     Dosage: 1000 IU, QD
     Route: 048
     Dates: start: 2002
  2. HORMONES (UNSPECIFIED) [Concomitant]
     Active Substance: UNSPECIFIED INGREDIENT
     Dosage: UNK
     Route: 065
     Dates: start: 1999, end: 2009
  3. FOSAMAX [Suspect]
     Active Substance: ALENDRONATE SODIUM
     Indication: OSTEOPENIA
     Dosage: 70 MG, UNK
     Route: 048
     Dates: start: 200306, end: 200412
  4. VITAMINS (UNSPECIFIED) [Concomitant]
     Active Substance: VITAMINS
     Dosage: 1000 IU, QD
     Route: 048
     Dates: start: 2002
  5. ALLEGRA [Concomitant]
     Active Substance: FEXOFENADINE HYDROCHLORIDE
     Indication: HYPERSENSITIVITY
     Route: 065
  6. FOSAMAX [Suspect]
     Active Substance: ALENDRONATE SODIUM
     Indication: OSTEOPENIA
     Dosage: 35 MG, UNK
     Route: 048
     Dates: start: 200306, end: 200412
  7. CALCIUM (UNSPECIFIED) [Concomitant]
     Active Substance: CALCIUM
     Dosage: 1000 IU, QD
     Route: 048
     Dates: start: 2002

REACTIONS (24)
  - Abdominal distension [Not Recovered/Not Resolved]
  - Pruritus [Unknown]
  - Fungal infection [Unknown]
  - Headache [Unknown]
  - Restless legs syndrome [Unknown]
  - Fibrocystic breast disease [Unknown]
  - Blood cholesterol increased [Unknown]
  - Adverse event [Unknown]
  - Hypertension [Unknown]
  - Bladder operation [Unknown]
  - Hyperlipidaemia [Unknown]
  - Osteoarthritis [Recovering/Resolving]
  - Varicose vein [Unknown]
  - Femur fracture [Not Recovered/Not Resolved]
  - Depression [Unknown]
  - Anxiety [Unknown]
  - Femur fracture [Not Recovered/Not Resolved]
  - Fungal infection [Unknown]
  - Hysterectomy [Unknown]
  - Pain in extremity [Unknown]
  - Oedema peripheral [Unknown]
  - Impaired healing [Unknown]
  - Pain in extremity [Unknown]
  - Fall [Unknown]

NARRATIVE: CASE EVENT DATE: 2004
